FAERS Safety Report 16262431 (Version 1)
Quarter: 2019Q2

REPORT INFORMATION
  Report Type: Spontaneous
  Country: CN (occurrence: CN)
  Receive Date: 20190501
  Receipt Date: 20190501
  Transmission Date: 20190711
  Serious: Yes (Other)
  Sender: FDA-Public Use
  Company Number: CN-BAXTER-2019BAX008349

PATIENT
  Age: 30 Year
  Sex: Female
  Weight: 63 kg

DRUGS (6)
  1. 0.9% SODIUM CHLORIDE INJECTION [Suspect]
     Active Substance: SODIUM CHLORIDE
     Indication: MEDICATION DILUTION
     Dosage: 1ST CHEMOTHERAPY, ENDOXAN 820 MG + NS 40 ML
     Route: 041
     Dates: start: 20190218, end: 20190218
  2. TAXOTERE [Suspect]
     Active Substance: DOCETAXEL
     Indication: BREAST CANCER FEMALE
     Dosage: 1ST CHEMOTHERAPY, TAXOTERE 123 MG + NS 250 ML
     Route: 041
     Dates: start: 20190218, end: 20190218
  3. PHARMORUBICIN RD [Suspect]
     Active Substance: EPIRUBICIN
     Indication: BREAST CANCER FEMALE
     Dosage: 1ST CHEMOTHERAPY, PHARMORUBICIN RD 123 MG + NS 100 ML
     Route: 041
     Dates: start: 20190218, end: 20190218
  4. ENDOXAN [Suspect]
     Active Substance: CYCLOPHOSPHAMIDE
     Indication: BREAST CANCER FEMALE
     Dosage: DOSAGE FORM: INJECTION, 1ST CHEMOTHERAPY, ENDOXAN 820 MG + NS 40 ML
     Route: 041
     Dates: start: 20190218, end: 20190218
  5. 0.9% SODIUM CHLORIDE INJECTION [Suspect]
     Active Substance: SODIUM CHLORIDE
     Dosage: 1ST CHEMOTHERAPY, TAXOTERE 123 MG + NS 250 ML
     Route: 041
     Dates: start: 20190218, end: 20190218
  6. 0.9% SODIUM CHLORIDE INJECTION [Suspect]
     Active Substance: SODIUM CHLORIDE
     Dosage: 1ST CHEMOTHERAPY, PHARMORUBICIN RD 123 MG + NS 100 ML
     Route: 041
     Dates: start: 20190218, end: 20190218

REACTIONS (2)
  - Leukopenia [Recovered/Resolved]
  - Agranulocytosis [Recovered/Resolved]

NARRATIVE: CASE EVENT DATE: 20190304
